FAERS Safety Report 4386769-3 (Version None)
Quarter: 2004Q2

REPORT INFORMATION
  Report Type: 
  Country: None (occurrence: None)
  Receive Date: 20040629
  Receipt Date: 20040511
  Transmission Date: 20050107
  Serious: Yes (Hospitalization)
  Sender: FDA-Public Use
  Company Number: FR-MERCK-0405FRA00035

PATIENT
  Age: 77 Year
  Sex: Male

DRUGS (3)
  1. ASPIRIN LYSINE [Concomitant]
     Route: 048
  2. HYZAAR [Suspect]
     Indication: HYPERTENSION
     Route: 048
     Dates: start: 20031201, end: 20040510
  3. PIRIBEDIL [Concomitant]
     Route: 048

REACTIONS (1)
  - ACUTE MYELOID LEUKAEMIA [None]
